FAERS Safety Report 4311401-4 (Version None)
Quarter: 2004Q1

REPORT INFORMATION
  Report Type: 
  Country: None (occurrence: None)
  Receive Date: 20040303
  Receipt Date: 20040303
  Transmission Date: 20041129
  Serious: Yes (Other)
  Sender: FDA-Public Use
  Company Number: None

PATIENT
  Age: 28 Year
  Sex: Male
  Weight: 99.3377 kg

DRUGS (1)
  1. FLUOXETINE HYDROCHLORIDE (GENERIC PROZAC) [Suspect]
     Indication: DEPRESSION
     Dosage: 20 MG, DAILY ORALLY
     Route: 048
     Dates: start: 20040201

REACTIONS (4)
  - AGITATION [None]
  - ANGER [None]
  - IRRITABILITY [None]
  - PHARMACEUTICAL PRODUCT COMPLAINT [None]
